FAERS Safety Report 8600927-0 (Version None)
Quarter: 2012Q3

REPORT INFORMATION
  Report Type: 
  Country: None (occurrence: None)
  Receive Date: 20120803
  Receipt Date: 20120724
  Transmission Date: 20120928
  Serious: Yes (Other)
  Sender: FDA-Public Use
  Company Number: 1361765

PATIENT
  Age: 65 Year
  Sex: Female

DRUGS (2)
  1. PAMIDRONATE DISODIUM [Suspect]
     Indication: BREAST CANCER METASTATIC
     Dosage: 90 MG MILLIGRAM(S), 4 WEEK, INTRAVENOUS DRIP
     Route: 041
     Dates: start: 20120712
  2. PAMIDRONATE DISODIUM [Suspect]
     Indication: METASTASES TO BONE
     Dosage: 90 MG MILLIGRAM(S), 4 WEEK, INTRAVENOUS DRIP
     Route: 041
     Dates: start: 20120712

REACTIONS (5)
  - SYNCOPE [None]
  - DRUG HYPERSENSITIVITY [None]
  - ASTHENIA [None]
  - PALLOR [None]
  - THROAT IRRITATION [None]
